FAERS Safety Report 24367535 (Version 3)
Quarter: 2024Q4

REPORT INFORMATION
  Report Type: Spontaneous
  Country: US (occurrence: US)
  Receive Date: 20240926
  Receipt Date: 20241028
  Transmission Date: 20250115
  Serious: No
  Sender: JOHNSON AND JOHNSON
  Company Number: US-JNJFOC-20240945702

PATIENT
  Age: 50 Year
  Sex: Female

DRUGS (1)
  1. TREMFYA [Suspect]
     Active Substance: GUSELKUMAB
     Indication: Psoriasis
     Route: 065
     Dates: start: 2017

REACTIONS (5)
  - Device failure [Unknown]
  - Product dose omission issue [Unknown]
  - Psoriasis [Unknown]
  - Wrong technique in device usage process [Unknown]
  - Device defective [Unknown]

NARRATIVE: CASE EVENT DATE: 20240917
